FAERS Safety Report 19068930 (Version 1)
Quarter: 2021Q1

REPORT INFORMATION
  Report Type: Spontaneous
  Country: US (occurrence: US)
  Receive Date: 20210329
  Receipt Date: 20210329
  Transmission Date: 20210420
  Serious: Yes (Hospitalization, Other)
  Sender: FDA-Public Use
  Company Number: US-PURDUE PHARMA-USA-2021-0236470

PATIENT
  Age: 60 Year
  Sex: Male

DRUGS (3)
  1. OXYCONTIN [Suspect]
     Active Substance: OXYCODONE HYDROCHLORIDE
     Indication: PRODUCT USED FOR UNKNOWN INDICATION
     Route: 048
  2. TACROLIMUS. [Concomitant]
     Active Substance: TACROLIMUS
     Dosage: 0.5 UNK, UNK
     Route: 065
  3. TACROLIMUS. [Concomitant]
     Active Substance: TACROLIMUS
     Indication: PRODUCT USED FOR UNKNOWN INDICATION
     Dosage: 3 UNK, UNK
     Route: 065

REACTIONS (15)
  - Procedural intestinal perforation [Unknown]
  - Swelling [Unknown]
  - Hypertension [Not Recovered/Not Resolved]
  - Pyrexia [Recovered/Resolved]
  - Liver disorder [Unknown]
  - Pain [Not Recovered/Not Resolved]
  - Drug hypersensitivity [Recovering/Resolving]
  - Vomiting [Unknown]
  - Intestinal mass [Unknown]
  - Dysstasia [Unknown]
  - Weight decreased [Not Recovered/Not Resolved]
  - Liver transplant [Recovering/Resolving]
  - Thrombosis [Unknown]
  - Hospitalisation [Unknown]
  - Asthenia [Unknown]

NARRATIVE: CASE EVENT DATE: 2020
